FAERS Safety Report 7939365-2 (Version None)
Quarter: 2011Q4

REPORT INFORMATION
  Report Type: 
  Country: None (occurrence: None)
  Receive Date: 20111125
  Receipt Date: 20111116
  Transmission Date: 20120403
  Serious: Yes (Hospitalization, Other)
  Sender: FDA-Public Use
  Company Number: DE-AMGEN-DEUSP2011060929

PATIENT
  Age: 66 Year
  Sex: Male
  Weight: 79 kg

DRUGS (6)
  1. PREDNISOLONE [Concomitant]
     Dosage: 5 MG, 1X/DAY
     Route: 048
  2. THEOPHYLLINE [Concomitant]
     Indication: ASTHMA
     Dosage: 250 MG, QD
  3. ENBREL [Suspect]
     Indication: RHEUMATOID ARTHRITIS
     Dosage: 50 MG, WEEKLY
     Route: 058
     Dates: start: 20091210
  4. PREDNISOLONE [Concomitant]
     Indication: RHEUMATOID ARTHRITIS
     Dosage: 1 MG, UNK
     Dates: start: 20101101
  5. ENALAPRIL MALEATE [Concomitant]
     Indication: HYPERTENSION
     Dosage: 30 MG, QD
  6. METHOTREXATE SODIUM [Concomitant]
     Indication: RHEUMATOID ARTHRITIS
     Dosage: 20 MG, WEEKLY
     Route: 058
     Dates: start: 20050101

REACTIONS (1)
  - GASTRIC CANCER [None]
